FAERS Safety Report 19555618 (Version 7)
Quarter: 2023Q4

REPORT INFORMATION
  Report Type: Spontaneous
  Country: CZ (occurrence: CZ)
  Receive Date: 20210715
  Receipt Date: 20231207
  Transmission Date: 20240110
  Serious: Yes (Hospitalization, Other)
  Sender: FDA-Public Use
  Company Number: CZ-MYLANLABS-2021M1042051

PATIENT
  Age: 63 Year
  Sex: Female

DRUGS (16)
  1. ESCITALOPRAM [Suspect]
     Active Substance: ESCITALOPRAM OXALATE
     Indication: Multimorbidity
     Dosage: 10 MILLIGRAM, QD
     Route: 065
  2. ESCITALOPRAM [Suspect]
     Active Substance: ESCITALOPRAM OXALATE
     Indication: Attention deficit hyperactivity disorder
  3. ESCITALOPRAM [Suspect]
     Active Substance: ESCITALOPRAM OXALATE
     Indication: Depression
  4. OLANZAPINE [Suspect]
     Active Substance: OLANZAPINE
     Indication: Multimorbidity
     Dosage: 20 MILLIGRAM
     Route: 065
  5. OLANZAPINE [Suspect]
     Active Substance: OLANZAPINE
     Indication: Attention deficit hyperactivity disorder
  6. OLANZAPINE [Suspect]
     Active Substance: OLANZAPINE
     Indication: Delusion
  7. OLANZAPINE [Suspect]
     Active Substance: OLANZAPINE
     Indication: Hallucination, auditory
  8. ARIPIPRAZOLE [Suspect]
     Active Substance: ARIPIPRAZOLE
     Indication: Multimorbidity
     Dosage: 15 MILLIGRAM, QD
     Route: 065
  9. ARIPIPRAZOLE [Suspect]
     Active Substance: ARIPIPRAZOLE
     Indication: Attention deficit hyperactivity disorder
  10. QUETIAPINE [Suspect]
     Active Substance: QUETIAPINE
     Indication: Multimorbidity
     Dosage: 400 MG, QUETIAPINE PROLONG 400 MG
     Route: 065
  11. QUETIAPINE [Suspect]
     Active Substance: QUETIAPINE
     Indication: Attention deficit hyperactivity disorder
  12. PREGABALIN [Suspect]
     Active Substance: PREGABALIN
     Indication: Psychotic disorder
     Dosage: UNK
     Route: 065
  13. PREGABALIN [Suspect]
     Active Substance: PREGABALIN
     Dosage: 150 MG, QD, 150 MG / DAY
     Route: 065
  14. AGOMELATINE [Suspect]
     Active Substance: AGOMELATINE
     Indication: Affective disorder
     Dosage: UNK
     Route: 065
  15. AGOMELATINE [Suspect]
     Active Substance: AGOMELATINE
     Dosage: 25 MG, DOSES 25-50 MG
     Route: 065
  16. PREGABALIN [Concomitant]
     Active Substance: PREGABALIN
     Indication: Prophylaxis
     Dosage: 150 MILLIGRAM, QD
     Route: 048

REACTIONS (23)
  - Psychiatric decompensation [Recovered/Resolved]
  - Delusion [Recovered/Resolved]
  - Behaviour disorder [Recovered/Resolved]
  - Hallucination, auditory [Recovered/Resolved]
  - Type 2 diabetes mellitus [Recovering/Resolving]
  - Somnolence [Recovered/Resolved]
  - Akathisia [Recovered/Resolved]
  - Weight increased [Recovering/Resolving]
  - Accelerated hypertension [Recovered/Resolved]
  - Irritability [Recovered/Resolved]
  - Euphoric mood [Recovered/Resolved]
  - Sleep deficit [Recovered/Resolved]
  - Central obesity [Recovering/Resolving]
  - Schizoaffective disorder [Recovered/Resolved]
  - Dysphoria [Recovered/Resolved]
  - Asthenia [Recovered/Resolved]
  - Tardive dyskinesia [Recovered/Resolved]
  - Therapeutic product effect incomplete [Unknown]
  - Drug ineffective [Unknown]
  - Affective disorder [Unknown]
  - Psychotic disorder [Recovering/Resolving]
  - Depression [Recovering/Resolving]
  - Sedation [Unknown]
